FAERS Safety Report 5102728-7 (Version None)
Quarter: 2006Q3

REPORT INFORMATION
  Report Type: 
  Country: None (occurrence: None)
  Receive Date: 20060907
  Receipt Date: 20060825
  Transmission Date: 20061208
  Serious: Yes (Hospitalization)
  Sender: FDA-Public Use
  Company Number: 2006-144557-NL

PATIENT
  Age: 45 Year
  Sex: Male

DRUGS (6)
  1. MIRTAZAPINE [Suspect]
     Dosage: ORAL
     Route: 048
  2. METHADONE HCL [Concomitant]
  3. EFAVIRENZ [Concomitant]
  4. TENOFOVIR DISOPROXIL FUMARATE [Concomitant]
  5. LAMIVUDINE [Concomitant]
  6. BACTRIM DS [Concomitant]

REACTIONS (3)
  - ALCOHOL USE [None]
  - MALAISE [None]
  - SYNCOPE [None]
